FAERS Safety Report 5094297-5 (Version None)
Quarter: 2006Q3

REPORT INFORMATION
  Report Type: 
  Country: None (occurrence: None)
  Receive Date: 20060831
  Receipt Date: 20060829
  Transmission Date: 20061208
  Serious: Yes (Other)
  Sender: FDA-Public Use
  Company Number: PHEH2006US11095

PATIENT
  Sex: Female

DRUGS (2)
  1. SYNTHROID [Concomitant]
  2. LAMISIL [Suspect]
     Route: 065
     Dates: end: 20060801

REACTIONS (4)
  - ARTHRALGIA [None]
  - DYSPNOEA [None]
  - OEDEMA PERIPHERAL [None]
  - URTICARIA [None]
